FAERS Safety Report 12681896 (Version 2)
Quarter: 2017Q1

REPORT INFORMATION
  Report Type: Report from Study
  Country: US (occurrence: US)
  Receive Date: 20160824
  Receipt Date: 20170210
  Transmission Date: 20170428
  Serious: Yes (Death, Hospitalization)
  Sender: FDA-Public Use
  Company Number: US-ACTELION-A-US2016-141082

PATIENT
  Age: 70 Year
  Sex: Male

DRUGS (11)
  1. OPSUMIT [Suspect]
     Active Substance: MACITENTAN
     Indication: PULMONARY ARTERIAL HYPERTENSION
     Dosage: 10 MG, QD
     Route: 048
  2. OMEGA 3 [Concomitant]
     Active Substance: OMEGA-3 FATTY ACIDS
  3. NORVASC [Concomitant]
     Active Substance: AMLODIPINE BESYLATE
  4. BYSTOLIC [Concomitant]
     Active Substance: NEBIVOLOL HYDROCHLORIDE
  5. WELLBUTRIN [Concomitant]
     Active Substance: BUPROPION HYDROCHLORIDE
  6. VITAMIN D [Concomitant]
     Active Substance: CHOLECALCIFEROL
  7. FISH OIL [Concomitant]
     Active Substance: FISH OIL
  8. ALLOPURINOL. [Concomitant]
     Active Substance: ALLOPURINOL
  9. SILDENAFIL. [Concomitant]
     Active Substance: SILDENAFIL
  10. ASPIRIN. [Concomitant]
     Active Substance: ASPIRIN
  11. POTASSIUM [Concomitant]
     Active Substance: POTASSIUM

REACTIONS (2)
  - Neoplasm malignant [Unknown]
  - Death [Fatal]

NARRATIVE: CASE EVENT DATE: 20170129
